FAERS Safety Report 8228973-X (Version None)
Quarter: 2012Q1

REPORT INFORMATION
  Report Type: 
  Country: None (occurrence: None)
  Receive Date: 20120322
  Receipt Date: 20120319
  Transmission Date: 20120608
  Serious: Yes (Hospitalization, Other)
  Sender: FDA-Public Use
  Company Number: US-BAYER-200941479NA

PATIENT
  Age: 33 Year
  Sex: Female
  Weight: 72 kg

DRUGS (19)
  1. HYDROCODONE BITARTRATE AND ACETAMINOPHEN [Concomitant]
     Dosage: 04-JUN-2009
     Route: 065
  2. YAZ [Suspect]
     Indication: ORAL CONTRACEPTION
     Route: 048
     Dates: start: 20061128, end: 20090615
  3. SINGULAIR [Concomitant]
     Dosage: UNK UNK, PRN
     Route: 055
  4. RELPAX [Concomitant]
     Route: 065
  5. HYDROCODONE BITARTRATE AND ACETAMINOPHEN [Concomitant]
     Dosage: 04-JUN-2009
     Route: 065
  6. DECONAMINE [PSEUDOEPHEDRINE HYDROCHLORIDE] [Concomitant]
     Dosage: UNK
     Dates: start: 20090406
  7. YAZ [Suspect]
     Indication: ACNE
  8. DULCO-LAXO [Concomitant]
     Route: 065
  9. ASPIRIN [Concomitant]
     Dosage: 325 MG, BID
  10. ZOLOFT [Concomitant]
     Indication: DEPRESSION
     Dosage: UNK
     Route: 048
     Dates: start: 20060922
  11. YAZ [Suspect]
     Indication: HYPOMENORRHOEA
     Dosage: UNK UNK, UNK
     Dates: start: 20061012, end: 20090614
  12. PROTONIX [Concomitant]
     Route: 065
  13. VALTREX [Concomitant]
     Dosage: 29-MAY-2009
     Route: 065
  14. CELEBREX [Concomitant]
     Dosage: 05-JUN-2009 (10 DAY SUPPLY)
     Route: 065
  15. PROPOXYPHENE NAPSYLATE W/ ACETAMINOPHEN [Concomitant]
     Dosage: 06-JUN2-009
     Route: 065
  16. IBUPROFEN (ADVIL) [Concomitant]
     Route: 065
  17. RELPAX [Concomitant]
     Route: 065
  18. QVAR 40 [Concomitant]
     Dosage: UNK UNK, BID
     Route: 055
     Dates: start: 20091005
  19. AMOXICILLIN [Concomitant]
     Dosage: 500 MG, UNK
     Dates: start: 20090406

REACTIONS (7)
  - PULMONARY INFARCTION [None]
  - LUNG NEOPLASM [None]
  - PLEURITIC PAIN [None]
  - CHEST PAIN [None]
  - DYSPNOEA [None]
  - PLEURAL EFFUSION [None]
  - PULMONARY EMBOLISM [None]
